FAERS Safety Report 6371198-3 (Version None)
Quarter: 2009Q3

REPORT INFORMATION
  Report Type: 
  Country: None (occurrence: None)
  Receive Date: 20090923
  Receipt Date: 20071210
  Transmission Date: 20100115
  Serious: Yes (Hospitalization, Other)
  Sender: FDA-Public Use
  Company Number: US-ASTRAZENECA-2006UW27642

PATIENT
  Age: 14913 Day
  Sex: Male
  Weight: 72.1 kg

DRUGS (18)
  1. SEROQUEL [Suspect]
     Indication: DEPRESSION
     Route: 048
     Dates: start: 20050501, end: 20060201
  2. SEROQUEL [Suspect]
     Dosage: 25MG-800 MG
     Route: 048
     Dates: start: 20050512
  3. WELLBUTRIN [Concomitant]
  4. XANAX [Concomitant]
  5. OXYCODONE [Concomitant]
     Dosage: 10/160 TID
     Route: 048
  6. NAPROXEN [Concomitant]
  7. ELAVIL [Concomitant]
  8. ZOLOFT [Concomitant]
     Indication: ANXIETY
     Dosage: 25MG-100 MG
  9. ZOLOFT [Concomitant]
     Indication: DEPRESSED MOOD
     Dosage: 25MG-100 MG
  10. TRAZODONE [Concomitant]
     Route: 048
  11. LIPITOR [Concomitant]
     Route: 048
  12. PREDNISONE [Concomitant]
     Dosage: 40MG-60MG
     Route: 048
  13. FLEXERIL [Concomitant]
     Route: 048
  14. NORVASC [Concomitant]
     Route: 048
  15. VISTARIL [Concomitant]
     Route: 048
  16. ROBAXIN [Concomitant]
     Route: 048
  17. THEOPHYLLINE-SR [Concomitant]
  18. LORATADINE [Concomitant]
     Route: 048

REACTIONS (6)
  - BLOOD CHOLESTEROL INCREASED [None]
  - DIABETES MELLITUS [None]
  - DIABETES MELLITUS INADEQUATE CONTROL [None]
  - HYPERGLYCAEMIA [None]
  - TYPE 2 DIABETES MELLITUS [None]
  - VISION BLURRED [None]
